FAERS Safety Report 17070182 (Version 3)
Quarter: 2020Q1

REPORT INFORMATION
  Report Type: Report from Study
  Country: US (occurrence: US)
  Receive Date: 20191125
  Receipt Date: 20200328
  Transmission Date: 20200409
  Serious: No
  Sender: FDA-Public Use
  Company Number: US-009507513-1911USA007575

PATIENT
  Age: 16 Year
  Sex: Female
  Weight: 58.5 kg

DRUGS (2)
  1. IMPLANON [Suspect]
     Active Substance: ETONOGESTREL
     Dosage: 1 IMPLANT/ROD FOR 3 YEARS
     Route: 059
     Dates: start: 20191111
  2. IMPLANON [Suspect]
     Active Substance: ETONOGESTREL
     Indication: CONTRACEPTION
     Dosage: STRENGTH:68 MILLIGRAM, 1 IMPLANT/ROD FOR 3 YEARS, INTO THE PATIENT^S LEFT ARM
     Route: 058
     Dates: start: 20191111, end: 20191111

REACTIONS (3)
  - Product quality issue [Unknown]
  - Device difficult to use [Recovered/Resolved]
  - Complication of device insertion [Recovered/Resolved]

NARRATIVE: CASE EVENT DATE: 20191111
